FAERS Safety Report 9566898 (Version 1)
Quarter: 2013Q3

REPORT INFORMATION
  Report Type: Spontaneous
  Country: US (occurrence: US)
  Receive Date: 20130930
  Receipt Date: 20130930
  Transmission Date: 20140515
  Serious: No
  Sender: FDA-Public Use
  Company Number: US-AMGEN-USASP2012060744

PATIENT
  Age: 46 Year
  Sex: Female
  Weight: 68.03 kg

DRUGS (7)
  1. ENBREL [Suspect]
     Indication: PRODUCT USED FOR UNKNOWN INDICATION
     Dosage: 50 MG, QWK
     Route: 058
  2. VITAMIN D                          /00107901/ [Concomitant]
     Dosage: 50000 UNIT, UNK
  3. PREDNISONE [Concomitant]
     Dosage: 1 MG, UNK
  4. METHOTREXATE [Concomitant]
     Dosage: 2.5 MG, UNK
  5. PRILOSEC                           /00661201/ [Concomitant]
     Dosage: 25 MG, UNK
  6. YAZ [Concomitant]
     Dosage: UNK 3-0.02MG
  7. ALIGN [Concomitant]
     Dosage: 4 MG, UNK

REACTIONS (1)
  - Precancerous skin lesion [Unknown]
